FAERS Safety Report 14913395 (Version 12)
Quarter: 2018Q3

REPORT INFORMATION
  Report Type: Report from Study
  Country: NL (occurrence: NL)
  Receive Date: 20180518
  Receipt Date: 20180921
  Transmission Date: 20181010
  Serious: Yes (Death, Hospitalization)
  Sender: FDA-Public Use
  Company Number: NL-ROCHE-2118798

PATIENT
  Age: 53 Year
  Sex: Male
  Weight: 71 kg

DRUGS (23)
  1. PARACETAMOL [Concomitant]
     Active Substance: ACETAMINOPHEN
     Dosage: SUBSEQUENT DOSE RECEIVED ON :07/NOV/2012, 09/APR/2013, 23/APR/2013, 23/SEP/2013, 07/OCT/2013, 10/MAR
     Route: 065
     Dates: start: 20121023, end: 20180518
  2. DIVISUN [Concomitant]
     Indication: VITAMIN D DECREASED
     Route: 065
     Dates: start: 20131017, end: 20140829
  3. DIVISUN [Concomitant]
     Route: 065
     Dates: start: 20160726, end: 20180518
  4. DIVISUN [Concomitant]
     Route: 065
     Dates: start: 20141126, end: 20160725
  5. MOVICOLON [Concomitant]
     Active Substance: POLYETHYLENE GLYCOL 3350\POTASSIUM CHLORIDE\SODIUM BICARBONATE\SODIUM CHLORIDE
     Indication: CONSTIPATION
     Route: 065
     Dates: start: 2015, end: 201510
  6. PLACEBO [Suspect]
     Active Substance: UNSPECIFIED INGREDIENT
     Indication: PRIMARY PROGRESSIVE MULTIPLE SCLEROSIS
     Dosage: TWO INTRAVENOUS (IV) INFUSIONS SEPARATED BY 14 DAYS IN EACH TREATMENT CYCLE OF 24 WEEKS.?SUBSEQUENT
     Route: 042
     Dates: start: 20121023, end: 20151115
  7. ZYRTEC [Concomitant]
     Active Substance: CETIRIZINE HYDROCHLORIDE
     Dosage: SUBSEQUENT DOSE RECEIVED ON :07/NOV/2012, 09/APR/2013, 23/APR/2013, 23/SEP/2013, 07/OCT/2013, 10/MAR
     Route: 065
     Dates: start: 20121023
  8. MELATONIN [Concomitant]
     Active Substance: MELATONIN
     Indication: INSOMNIA
     Route: 065
     Dates: start: 20141110, end: 20180518
  9. OMEPRAZOL [Concomitant]
     Active Substance: OMEPRAZOLE
     Route: 065
     Dates: start: 20180507
  10. METHYLPREDNISOLONE. [Concomitant]
     Active Substance: METHYLPREDNISOLONE
     Dosage: SUBSEQUENT DOSE RECEIVED ON :07/NOV/2012, 09/APR/2013, 23/APR/2013, 23/SEP/2013, 07/OCT/2013, 10/MAR
     Route: 065
     Dates: start: 20121023
  11. DIVISUN [Concomitant]
     Route: 065
     Dates: start: 20140830, end: 20141125
  12. DORMICUM [Concomitant]
     Route: 065
  13. CETIRIZINE [Concomitant]
     Active Substance: CETIRIZINE HYDROCHLORIDE
     Route: 065
     Dates: start: 20161017
  14. CIALIS [Concomitant]
     Active Substance: TADALAFIL
     Route: 065
     Dates: start: 20130801, end: 20180518
  15. VITAMIN B COMPLEX [Concomitant]
     Active Substance: CYANOCOBALAMIN\DEXPANTHENOL\NIACINAMIDE\PYRIDOXINE HYDROCHLORIDE\RIBOFLAVIN 5^-PHOSPHATE SODIUM\THIAMINE HYDROCHLORIDE\VITAMIN B COMPLEX
     Indication: PROPHYLAXIS
     Route: 065
     Dates: start: 20141126, end: 20180518
  16. CETIRIZINE [Concomitant]
     Active Substance: CETIRIZINE HYDROCHLORIDE
     Route: 065
     Dates: start: 20130423
  17. DIVISUN [Concomitant]
     Route: 065
     Dates: start: 20130429, end: 20131016
  18. TOVIAZ [Concomitant]
     Active Substance: FESOTERODINE FUMARATE
     Route: 065
     Dates: start: 201212, end: 20180518
  19. TEMAZEPAM. [Concomitant]
     Active Substance: TEMAZEPAM
     Route: 065
     Dates: start: 20180426
  20. AMOXICILLIN. [Concomitant]
     Active Substance: AMOXICILLIN
  21. OCRELIZUMAB. [Suspect]
     Active Substance: OCRELIZUMAB
     Indication: PRIMARY PROGRESSIVE MULTIPLE SCLEROSIS
     Dosage: TWO IV INFUSIONS OF OCRELIZUMAB 300 MG SEPARATED BY 14 DAYS FOR CYCLE 1 AND SINGLE IV INFUSION OF OC
     Route: 042
     Dates: start: 20151116
  22. MOVICOLON [Concomitant]
     Active Substance: POLYETHYLENE GLYCOL 3350\POTASSIUM CHLORIDE\SODIUM BICARBONATE\SODIUM CHLORIDE
     Indication: CONSTIPATION
     Route: 065
     Dates: start: 201208, end: 20130724
  23. MOVICOLON [Concomitant]
     Active Substance: POLYETHYLENE GLYCOL 3350\POTASSIUM CHLORIDE\SODIUM BICARBONATE\SODIUM CHLORIDE
     Dosage: 3 SACCHETS
     Route: 065
     Dates: start: 20180507, end: 20180518

REACTIONS (2)
  - Pancreatic carcinoma metastatic [Fatal]
  - Constipation [Not Recovered/Not Resolved]

NARRATIVE: CASE EVENT DATE: 201510
